FAERS Safety Report 14009599 (Version 2)
Quarter: 2017Q4

REPORT INFORMATION
  Report Type: Spontaneous
  Country: RS (occurrence: RS)
  Receive Date: 20170925
  Receipt Date: 20171029
  Transmission Date: 20180321
  Serious: Yes (Hospitalization, Other)
  Sender: FDA-Public Use
  Company Number: RS-ALEXION-A201710278

PATIENT
  Age: 18 Year
  Sex: Male

DRUGS (2)
  1. SOLIRIS [Suspect]
     Active Substance: ECULIZUMAB
     Indication: PAROXYSMAL NOCTURNAL HAEMOGLOBINURIA
     Dosage: 900 MG, UNK
     Route: 042
     Dates: start: 20160326
  2. SOLIRIS [Suspect]
     Active Substance: ECULIZUMAB
     Dosage: 900 UNK, UNK
     Route: 065
     Dates: start: 20170912

REACTIONS (4)
  - Gallbladder empyema [Recovered/Resolved]
  - Haemolysis [Unknown]
  - Nausea [Unknown]
  - Gallbladder obstruction [Recovered/Resolved]

NARRATIVE: CASE EVENT DATE: 20170914
